FAERS Safety Report 14533163 (Version 1)
Quarter: 2018Q1

REPORT INFORMATION
  Report Type: Report from Study
  Country: US (occurrence: US)
  Receive Date: 20180215
  Receipt Date: 20180215
  Transmission Date: 20180509
  Serious: Yes (Other)
  Sender: FDA-Public Use
  Company Number: US-ROCHE-2067529

PATIENT
  Age: 16 Year
  Sex: Female
  Weight: 42.22 kg

DRUGS (1)
  1. PULMOZYME [Suspect]
     Active Substance: DORNASE ALFA
     Indication: INCREASED BRONCHIAL SECRETION
     Dosage: 1 VIAL PER NEBULIZER PER DAY ;ONGOING: NO
     Route: 065
     Dates: start: 1998, end: 201709

REACTIONS (1)
  - Hypoxia [Not Recovered/Not Resolved]

NARRATIVE: CASE EVENT DATE: 201406
